FAERS Safety Report 18548612 (Version 1)
Quarter: 2020Q4

REPORT INFORMATION
  Report Type: Spontaneous
  Country: US (occurrence: US)
  Receive Date: 20201126
  Receipt Date: 20201126
  Transmission Date: 20210114
  Serious: Yes (Other)
  Sender: FDA-Public Use
  Company Number: US-CIPLA LTD.-2020US08807

PATIENT

DRUGS (4)
  1. BENZTROPINE. [Suspect]
     Active Substance: BENZTROPINE
     Indication: SCHIZOPHRENIA
     Dosage: UNK (INCREASING DOSES OVER A PERIOD OF MONTHS)
     Route: 048
  2. HALOPERIDOL DECANOATE. [Suspect]
     Active Substance: HALOPERIDOL DECANOATE
     Indication: SCHIZOPHRENIA
     Dosage: 50 MILLIGRAM EVERY MONTH
     Route: 030
  3. BENZTROPINE. [Suspect]
     Active Substance: BENZTROPINE
     Dosage: 0.5 MILLIGRAM, PRN (TWO TIMES A DAY AS NEEDED)
     Route: 048
  4. BENZTROPINE. [Suspect]
     Active Substance: BENZTROPINE
     Dosage: 2 MILLIGRAM, QD (DOUBLE HIS PRESCRIBED DOSE PER DAY)
     Route: 048

REACTIONS (5)
  - Constipation [Recovered/Resolved]
  - Intentional product misuse [Recovered/Resolved]
  - Haematochezia [Recovered/Resolved]
  - Abdominal pain lower [Recovered/Resolved]
  - Dysuria [Recovered/Resolved]
